FAERS Safety Report 21871350 (Version 1)
Quarter: 2023Q1

REPORT INFORMATION
  Report Type: Spontaneous
  Country: US (occurrence: US)
  Receive Date: 20230117
  Receipt Date: 20230117
  Transmission Date: 20230418
  Serious: Yes (Hospitalization)
  Sender: FDA-Public Use
  Company Number: US-MYLANLABS-2023M1003606

PATIENT
  Age: 77 Year
  Sex: Male

DRUGS (4)
  1. WARFARIN [Suspect]
     Active Substance: WARFARIN
     Indication: Anticoagulant therapy
     Dosage: UNK
     Route: 065
     Dates: start: 202002
  2. RITUXIMAB [Suspect]
     Active Substance: RITUXIMAB
     Indication: Rheumatoid arthritis
     Dosage: 1000 MILLIGRAM, BIWEEKLY, 2 DOSES RECEIVED
     Route: 065
     Dates: start: 201910
  3. RITUXIMAB [Suspect]
     Active Substance: RITUXIMAB
     Dosage: UNK,LAST DOSE
     Route: 065
     Dates: start: 202005
  4. BUDESONIDE\FORMOTEROL [Concomitant]
     Active Substance: BUDESONIDE\FORMOTEROL
     Indication: Chronic obstructive pulmonary disease
     Dosage: UNK
     Route: 065

REACTIONS (4)
  - Aspergillus infection [Recovered/Resolved]
  - Osteomyelitis fungal [Recovered/Resolved]
  - Haematoma [Unknown]
  - Infection [Recovered/Resolved]

NARRATIVE: CASE EVENT DATE: 20200101
